FAERS Safety Report 6205955-0 (Version None)
Quarter: 2009Q2

REPORT INFORMATION
  Report Type: 
  Country: None (occurrence: None)
  Receive Date: 20090521
  Receipt Date: 20090508
  Transmission Date: 20091009
  Serious: Yes (Hospitalization)
  Sender: FDA-Public Use
  Company Number: 8039497

PATIENT
  Age: 36 Year
  Sex: Female
  Weight: 102.3 kg

DRUGS (7)
  1. CIMZIA [Suspect]
     Indication: CROHN'S DISEASE
     Dosage: 400 MG 1/2W SC; 400 MG /M SC
     Route: 058
     Dates: start: 20080501
  2. PENTASA [Concomitant]
  3. VITAMIN B-12 [Concomitant]
  4. VITAMIN D [Concomitant]
  5. ZOLOFT [Concomitant]
  6. ZANAFLEX [Concomitant]
  7. BENADRYL [Concomitant]

REACTIONS (3)
  - CHEST DISCOMFORT [None]
  - PNEUMONIA [None]
  - STAPHYLOCOCCAL SKIN INFECTION [None]
